FAERS Safety Report 7328904-0 (Version None)
Quarter: 2011Q1

REPORT INFORMATION
  Report Type: 
  Country: None (occurrence: None)
  Receive Date: 20110303
  Receipt Date: 20110222
  Transmission Date: 20110831
  Serious: Yes (Hospitalization)
  Sender: FDA-Public Use
  Company Number: US-ASTRAZENECA-2010SE51190

PATIENT
  Sex: Female

DRUGS (2)
  1. CRESTOR [Suspect]
     Route: 048
  2. NEXIUM [Suspect]
     Route: 048

REACTIONS (7)
  - CARDIAC OPERATION [None]
  - CHEST PAIN [None]
  - CORONARY ARTERY BYPASS [None]
  - DRUG DOSE OMISSION [None]
  - SLEEP DISORDER DUE TO A GENERAL MEDICAL CONDITION [None]
  - DYSPEPSIA [None]
  - DISCOMFORT [None]
